FAERS Safety Report 8478955-8 (Version None)
Quarter: 2012Q2

REPORT INFORMATION
  Report Type: 
  Country: None (occurrence: None)
  Receive Date: 20120629
  Receipt Date: 20120619
  Transmission Date: 20120825
  Serious: Yes (Life-Threatening, Other)
  Sender: FDA-Public Use
  Company Number: US-ROCHE-1060063

PATIENT
  Sex: Male
  Weight: 93.169 kg

DRUGS (27)
  1. XELODA [Suspect]
     Indication: COLORECTAL CANCER
  2. FLUOROURACIL [Concomitant]
     Indication: COLORECTAL CANCER METASTATIC
  3. FUROSEMIDE [Concomitant]
     Route: 048
  4. LEVOTHYROXINE [Concomitant]
     Dosage: 25 MCG
     Route: 048
  5. HYCODAN [Concomitant]
     Dosage: 1-2 TAB
     Route: 048
  6. COUMADIN [Concomitant]
  7. METOPROLOL SUCCINATE [Concomitant]
     Route: 048
  8. BENADRYL [Concomitant]
     Route: 048
  9. AVASTIN [Suspect]
     Indication: COLORECTAL CANCER
     Route: 042
     Dates: start: 20110401, end: 20111201
  10. AMARYL [Concomitant]
  11. ALDACTONE [Concomitant]
     Route: 048
  12. LISINOPRIL [Concomitant]
     Route: 048
  13. WARFARIN SODIUM [Concomitant]
     Route: 048
  14. VITAMIN D [Concomitant]
     Dosage: 50000 UNITS
     Route: 048
  15. ASCORBIC ACID [Concomitant]
  16. SELENIUM [Concomitant]
  17. WELLBUTRIN [Concomitant]
  18. FLUTICASONE PROPIONATE [Concomitant]
  19. WELLBUTRIN SR [Concomitant]
  20. LOVAZA [Concomitant]
  21. PRILOSEC [Concomitant]
  22. IRINOTECAN HCL [Concomitant]
     Indication: COLORECTAL CANCER METASTATIC
  23. TOPROL-XL [Concomitant]
  24. ZOCOR [Concomitant]
  25. INSULIN [Concomitant]
  26. PRILOSEC [Concomitant]
  27. GLIMEPIRIDE [Concomitant]

REACTIONS (6)
  - CARDIOMYOPATHY [None]
  - DYSPNOEA [None]
  - EJECTION FRACTION DECREASED [None]
  - DISEASE RECURRENCE [None]
  - CARDIAC FAILURE CONGESTIVE [None]
  - DISEASE PROGRESSION [None]
